FAERS Safety Report 8479918-9 (Version None)
Quarter: 2012Q2

REPORT INFORMATION
  Report Type: 
  Country: None (occurrence: None)
  Receive Date: 20120629
  Receipt Date: 20120620
  Transmission Date: 20120825
  Serious: Yes (Other)
  Sender: FDA-Public Use
  Company Number: FR-ASTRAZENECA-2012SE42248

PATIENT
  Age: 60 Year
  Sex: Male

DRUGS (2)
  1. QUETIAPINE FUMARATE [Suspect]
     Route: 048
  2. QUETIAPINE FUMARATE [Suspect]
     Indication: BIPOLAR DISORDER
     Route: 048

REACTIONS (3)
  - DISINHIBITION [None]
  - DELIRIUM [None]
  - AGGRESSION [None]
